FAERS Safety Report 9139250 (Version 1)
Quarter: 2013Q1

REPORT INFORMATION
  Report Type: Spontaneous
  Country: GB (occurrence: GB)
  Receive Date: 20130305
  Receipt Date: 20130305
  Transmission Date: 20140127
  Serious: Yes (Other)
  Sender: FDA-Public Use
  Company Number: GB-PFIZER INC-2013073277

PATIENT
  Age: 67 Year
  Sex: Female

DRUGS (1)
  1. ISTIN [Suspect]
     Dosage: 10 MG, UNK

REACTIONS (4)
  - Urinary tract infection [Unknown]
  - Diarrhoea [Unknown]
  - Joint swelling [Unknown]
  - Back pain [Unknown]
